FAERS Safety Report 10246238 (Version 3)
Quarter: 2014Q4

REPORT INFORMATION
  Report Type: Spontaneous
  Country: CN (occurrence: CN)
  Receive Date: 20140619
  Receipt Date: 20141022
  Transmission Date: 20150528
  Serious: Yes (Other)
  Sender: FDA-Public Use
  Company Number: PHHY2014CN055233

PATIENT
  Age: 64 Year
  Sex: Male

DRUGS (1)
  1. VOTALIN [Suspect]
     Active Substance: DICLOFENAC SODIUM
     Indication: GOUT
     Dosage: 2 DF, BID
     Route: 048
     Dates: start: 20140101, end: 20140505

REACTIONS (2)
  - Renal impairment [Unknown]
  - Renal atrophy [Unknown]

NARRATIVE: CASE EVENT DATE: 20140505
